FAERS Safety Report 11771478 (Version 1)
Quarter: 2015Q4

REPORT INFORMATION
  Report Type: Report from Study
  Country: US (occurrence: US)
  Receive Date: 20151124
  Receipt Date: 20151124
  Transmission Date: 20160304
  Serious: Yes (Hospitalization)
  Sender: FDA-Public Use
  Company Number: US-GILEAD-2015-0183998

PATIENT
  Age: 66 Year
  Sex: Female

DRUGS (17)
  1. NIFEDIPINE. [Concomitant]
     Active Substance: NIFEDIPINE
  2. TYVASO [Concomitant]
     Active Substance: TREPROSTINIL
  3. POTASSIUM [Concomitant]
     Active Substance: POTASSIUM
  4. MELOXICAM. [Concomitant]
     Active Substance: MELOXICAM
  5. FOLIC ACID. [Concomitant]
     Active Substance: FOLIC ACID
  6. SYNTHROID [Concomitant]
     Active Substance: LEVOTHYROXINE SODIUM
  7. AMBRISENTAN [Suspect]
     Active Substance: AMBRISENTAN
     Indication: PULMONARY HYPERTENSION
     Dosage: 10 MG, UNK
     Route: 065
     Dates: start: 20120712
  8. ADEMPAS [Concomitant]
     Active Substance: RIOCIGUAT
  9. PAROXETINE [Concomitant]
     Active Substance: PAROXETINE\PAROXETINE HYDROCHLORIDE
  10. VITAMIN D3 [Concomitant]
     Active Substance: CHOLECALCIFEROL
  11. LIPITOR [Concomitant]
     Active Substance: ATORVASTATIN CALCIUM
  12. COLCHICINE. [Concomitant]
     Active Substance: COLCHICINE
  13. PREDNISONE. [Concomitant]
     Active Substance: PREDNISONE
  14. VIACTIV                            /00751501/ [Concomitant]
  15. FUROSEMIDE. [Concomitant]
     Active Substance: FUROSEMIDE
  16. LISINOPRIL. [Concomitant]
     Active Substance: LISINOPRIL
  17. CARDIZEM [Concomitant]
     Active Substance: DILTIAZEM HYDROCHLORIDE

REACTIONS (1)
  - Catheterisation cardiac [Not Recovered/Not Resolved]

NARRATIVE: CASE EVENT DATE: 20151118
